FAERS Safety Report 8022239-9 (Version None)
Quarter: 2012Q1

REPORT INFORMATION
  Report Type: 
  Country: None (occurrence: None)
  Receive Date: 20120104
  Receipt Date: 20111227
  Transmission Date: 20120608
  Serious: Yes (Hospitalization)
  Sender: FDA-Public Use
  Company Number: NL-MEDIMMUNE-MEDI-0013923

PATIENT
  Sex: Male
  Weight: 7.34 kg

DRUGS (6)
  1. SYNAGIS [Suspect]
     Route: 030
     Dates: start: 20111011, end: 20111011
  2. BUMETANIDE [Concomitant]
  3. BACTRIM [Concomitant]
     Route: 003
  4. ERYTHROMYCIN ETHYLSUCCINATE [Concomitant]
  5. SPIRONOLACTONE [Concomitant]
  6. OMEPRAZOLE MAGNESIUM [Concomitant]

REACTIONS (7)
  - PYREXIA [None]
  - GASTROENTERITIS [None]
  - LIVER DISORDER [None]
  - DEHYDRATION [None]
  - DYSPNOEA [None]
  - RENAL DISORDER [None]
  - RESPIRATORY FAILURE [None]
